FAERS Safety Report 25877578 (Version 1)
Quarter: 2025Q4

REPORT INFORMATION
  Report Type: Spontaneous
  Country: US (occurrence: US)
  Receive Date: 20251003
  Receipt Date: 20251003
  Transmission Date: 20260117
  Serious: Yes (Hospitalization, Other)
  Sender: BRISTOL-MYERS SQUIBB COMPANY
  Company Number: US-BRISTOL-MYERS SQUIBB COMPANY-2025-133052

PATIENT
  Age: 79 Year
  Sex: Female
  Weight: 87.70 kg

DRUGS (2)
  1. ELIQUIS [Suspect]
     Active Substance: APIXABAN
     Indication: Product used for unknown indication
     Dates: start: 20200104, end: 20250731
  2. RUXOLITINIB [Suspect]
     Active Substance: RUXOLITINIB
     Indication: Myelofibrosis
     Dosage: 20 MILLIGRAM, BID
     Dates: start: 20250606, end: 20250801

REACTIONS (6)
  - Urinary bladder haemorrhage [Unknown]
  - Sepsis [Unknown]
  - Renal vascular thrombosis [Unknown]
  - Thrombocytopenia [Not Recovered/Not Resolved]
  - Haematuria [Recovered/Resolved]
  - Haemoglobin decreased [Unknown]

NARRATIVE: CASE EVENT DATE: 20250729
